FAERS Safety Report 19984870 (Version 1)
Quarter: 2021Q4

REPORT INFORMATION
  Report Type: Spontaneous
  Country: ES (occurrence: ES)
  Receive Date: 20211021
  Receipt Date: 20211021
  Transmission Date: 20220303
  Serious: Yes (Death)
  Sender: FDA-Public Use
  Company Number: ES-EXELIXIS-CABO-21044483

PATIENT
  Age: 59 Year
  Sex: Male

DRUGS (2)
  1. AXITINIB [Suspect]
     Active Substance: AXITINIB
     Indication: Papillary renal cell carcinoma
     Dosage: 5 MG, QD
     Dates: start: 201903, end: 201906
  2. CABOMETYX [Suspect]
     Active Substance: CABOZANTINIB S-MALATE
     Indication: Papillary renal cell carcinoma
     Dosage: 40 MG, QD
     Route: 065
     Dates: start: 201805, end: 201903

REACTIONS (6)
  - Abdominal pain [Fatal]
  - Neoplasm progression [Fatal]
  - Asthenia [Fatal]
  - Death [Fatal]
  - Nausea [Fatal]
  - Diarrhoea [Fatal]

NARRATIVE: CASE EVENT DATE: 20190301
